FAERS Safety Report 7349929-5 (Version None)
Quarter: 2011Q1

REPORT INFORMATION
  Report Type: 
  Country: None (occurrence: None)
  Receive Date: 20110314
  Receipt Date: 20110309
  Transmission Date: 20110831
  Serious: Yes (Death)
  Sender: FDA-Public Use
  Company Number: CO-ASTRAZENECA-2011SE13183

PATIENT
  Age: 87 Year
  Sex: Female

DRUGS (1)
  1. BETALOC ZOK [Suspect]
     Indication: HYPERTENSION
     Route: 048

REACTIONS (1)
  - ACUTE MYOCARDIAL INFARCTION [None]
